FAERS Safety Report 7259000-9 (Version None)
Quarter: 2011Q1

REPORT INFORMATION
  Report Type: 
  Country: None (occurrence: None)
  Receive Date: 20110129
  Receipt Date: 20100618
  Transmission Date: 20110831
  Serious: No
  Sender: FDA-Public Use
  Company Number: US-ABBOTT-10P-163-0653207-00

PATIENT
  Sex: Male
  Weight: 88.53 kg

DRUGS (2)
  1. HUMIRA [Suspect]
     Indication: CROHN'S DISEASE
     Dates: start: 20090101
  2. PENTASSA [Concomitant]
     Indication: CROHN'S DISEASE

REACTIONS (4)
  - FLATULENCE [None]
  - CROHN'S DISEASE [None]
  - ABDOMINAL PAIN [None]
  - STRESS [None]
